FAERS Safety Report 22693222 (Version 4)
Quarter: 2024Q3

REPORT INFORMATION
  Report Type: Spontaneous
  Country: US (occurrence: US)
  Receive Date: 20230711
  Receipt Date: 20240722
  Transmission Date: 20241017
  Serious: No
  Sender: ASTELLAS
  Company Number: US-ASTELLAS-2023US007866

PATIENT
  Age: 68 Year
  Sex: Female

DRUGS (3)
  1. MYRBETRIQ [Suspect]
     Active Substance: MIRABEGRON
     Indication: Product used for unknown indication
     Route: 065
  2. MYRBETRIQ [Suspect]
     Active Substance: MIRABEGRON
     Indication: Product used for unknown indication
     Route: 065
  3. NITROFURANTOIN [Concomitant]
     Active Substance: NITROFURANTOIN
     Indication: Prophylaxis urinary tract infection
     Dosage: UNK UNK, UNKNOWN FREQ.
     Route: 065

REACTIONS (4)
  - Blood urine present [Unknown]
  - Depressed mood [Unknown]
  - Urinary tract infection [Unknown]
  - Sinusitis [Unknown]
